FAERS Safety Report 8616804-5 (Version None)
Quarter: 2012Q3

REPORT INFORMATION
  Report Type: 
  Country: None (occurrence: None)
  Receive Date: 20120823
  Receipt Date: 20120806
  Transmission Date: 20120928
  Serious: No
  Sender: FDA-Public Use
  Company Number: US-009507513-1208USA003055

PATIENT

DRUGS (3)
  1. RIBASPHERE [Suspect]
  2. PEG-INTRON [Suspect]
     Indication: HEPATITIS C
     Dosage: 96 MICROGRAM, QW
     Route: 058
     Dates: start: 20120726
  3. TELAPREVIR [Suspect]

REACTIONS (4)
  - INFLUENZA LIKE ILLNESS [None]
  - DIARRHOEA [None]
  - HAEMORRHOIDS [None]
  - IRRITABILITY [None]
